FAERS Safety Report 9432100 (Version 2)
Quarter: 2013Q3

REPORT INFORMATION
  Report Type: Spontaneous
  Country: US (occurrence: US)
  Receive Date: 20130731
  Receipt Date: 20130819
  Transmission Date: 20140515
  Serious: No
  Sender: FDA-Public Use
  Company Number: US-PFIZER INC-2013220172

PATIENT
  Age: 64 Year
  Sex: Female

DRUGS (8)
  1. XELJANZ [Suspect]
     Indication: RHEUMATOID ARTHRITIS
     Dosage: 5 MG, 2X/DAY
     Route: 048
  2. ZETIA [Concomitant]
     Dosage: 10 MG, UNK
  3. CITALOPRAM [Concomitant]
     Dosage: 10 MG, UNK
  4. TYLENOL [Concomitant]
     Dosage: 500 MG, UNK
  5. LISINOPRIL [Concomitant]
     Dosage: 5 MG, UNK
  6. NORVASC [Concomitant]
     Dosage: 5 MG, UNK
  7. ZYRTEC [Concomitant]
     Dosage: 5 MG, UNK
  8. PREVACID [Concomitant]
     Dosage: 15 MG, UNK

REACTIONS (5)
  - Drug dose omission [Unknown]
  - Activities of daily living impaired [Recovered/Resolved]
  - Diarrhoea [Recovered/Resolved]
  - Constipation [Recovered/Resolved]
  - Malaise [Recovered/Resolved]
